FAERS Safety Report 11238164 (Version 5)
Quarter: 2015Q3

REPORT INFORMATION
  Report Type: Spontaneous
  Country: JP (occurrence: JP)
  Receive Date: 20150703
  Receipt Date: 20150806
  Transmission Date: 20151125
  Serious: Yes (Life-Threatening, Hospitalization, Disabling, Other)
  Sender: FDA-Public Use
  Company Number: JP-GLAXOSMITHKLINE-JP2015JPN094962

PATIENT
  Age: 75 Year
  Sex: Female
  Weight: 45 kg

DRUGS (11)
  1. RIVOTRIL [Concomitant]
     Active Substance: CLONAZEPAM
     Dosage: 0.5 MG, BID
  2. VALTREX [Suspect]
     Active Substance: VALACYCLOVIR HYDROCHLORIDE
     Indication: HERPES ZOSTER
     Dosage: 1000 MG, TID
     Route: 048
     Dates: start: 20150623, end: 20150629
  3. WARFARIN [Concomitant]
     Active Substance: WARFARIN
     Dosage: 2 MG, QD
  4. MUCOSTA [Concomitant]
     Active Substance: REBAMIPIDE
     Dosage: 1 DF, TID
  5. SUNRYTHM [Concomitant]
     Active Substance: PILSICAINIDE HYDROCHLORIDE
     Dosage: 25 MG, BID
  6. HALFDIGOXIN [Concomitant]
     Active Substance: DIGOXIN
     Dosage: 0.125 MG, QD
  7. TAKEPRON [Concomitant]
     Active Substance: LANSOPRAZOLE
     Dosage: 15 MG, QD
  8. DEPAKENE [Concomitant]
     Active Substance: VALPROIC ACID
     Dosage: UNK, BID
  9. MILNACIPRAN HYDROCHLORIDE. [Concomitant]
     Active Substance: MILNACIPRAN HYDROCHLORIDE
     Dosage: 15 MG, BID
  10. ZOLPIDEM TARTRATE. [Concomitant]
     Active Substance: ZOLPIDEM TARTRATE
     Dosage: 5 MG, QD
  11. VASOLAN [Concomitant]
     Active Substance: VERAPAMIL HYDROCHLORIDE
     Dosage: 1 DF, TID

REACTIONS (7)
  - Blood urea nitrogen/creatinine ratio increased [Unknown]
  - Hyperkalaemia [Recovered/Resolved]
  - Urticaria [Unknown]
  - Blood potassium increased [Recovering/Resolving]
  - Renal disorder [Unknown]
  - Acute kidney injury [Recovered/Resolved]
  - Depressed level of consciousness [Unknown]

NARRATIVE: CASE EVENT DATE: 20150630
